FAERS Safety Report 12723362 (Version 2)
Quarter: 2016Q4

REPORT INFORMATION
  Report Type: Spontaneous
  Country: US (occurrence: US)
  Receive Date: 20160908
  Receipt Date: 20161215
  Transmission Date: 20170207
  Serious: Yes (Hospitalization)
  Sender: FDA-Public Use
  Company Number: US-AMGEN-USASP2016119388

PATIENT
  Sex: Female

DRUGS (5)
  1. NPLATE [Suspect]
     Active Substance: ROMIPLOSTIM
     Indication: PRODUCT USED FOR UNKNOWN INDICATION
     Dosage: UNK
     Route: 065
  2. PREDNISONE. [Concomitant]
     Active Substance: PREDNISONE
  3. DECADRON [Concomitant]
     Active Substance: DEXAMETHASONE
  4. PROMACTA [Concomitant]
     Active Substance: ELTROMBOPAG OLAMINE
     Dosage: 50 MG, 3 DAYS A WEEK
  5. RITUXAN [Concomitant]
     Active Substance: RITUXIMAB

REACTIONS (3)
  - Laboratory test abnormal [Unknown]
  - Adverse drug reaction [Unknown]
  - Malaise [Unknown]
